FAERS Safety Report 11873190 (Version 1)
Quarter: 2015Q4

REPORT INFORMATION
  Report Type: Report from Study
  Country: CO (occurrence: CO)
  Receive Date: 20151228
  Receipt Date: 20151228
  Transmission Date: 20160305
  Serious: Yes (Death)
  Sender: FDA-Public Use
  Company Number: CO-ABBVIE-15K-036-1527344-00

PATIENT
  Age: 23 Day
  Sex: Female

DRUGS (1)
  1. HUMIRA [Suspect]
     Active Substance: ADALIMUMAB
     Indication: PREMATURE BABY
     Route: 030
     Dates: start: 20150804, end: 20150907

REACTIONS (3)
  - Drug administered to patient of inappropriate age [Unknown]
  - Incorrect route of drug administration [Unknown]
  - Death [Fatal]

NARRATIVE: CASE EVENT DATE: 20150804
